FAERS Safety Report 9753924 (Version 1)
Quarter: 2013Q4

REPORT INFORMATION
  Report Type: Spontaneous
  Country: AT (occurrence: None)
  Receive Date: 20131211
  Receipt Date: 20131211
  Transmission Date: 20140711
  Serious: Yes (Death)
  Sender: FDA-Public Use
  Company Number: 2055876

PATIENT
  Age: 80 Year
  Sex: Female

DRUGS (4)
  1. MEROPENEM [Suspect]
     Indication: ANTIBIOTIC THERAPY
     Dosage: 3 X 500 MG, UNKNOWN, INTRAVENOUS)
     Route: 042
  2. VANCOMYCIN HYDROCHLORIDE [Suspect]
     Indication: ANTIBIOTIC THERAPY
     Dosage: 2 X 500 MG, UNKNOWN, INTRAVENOUS
     Route: 042
  3. METRONIDAZOLE [Suspect]
     Indication: CLOSTRIDIUM DIFFICILE COLITIS
     Dosage: 3 X 500 MG, UNKNOWN, ORAL
     Route: 048
  4. FIDAXOMICIN [Suspect]
     Indication: CLOSTRIDIUM DIFFICILE COLITIS
     Dosage: 2 X 200 MG, UNKNOWN, ORAL
     Route: 048

REACTIONS (2)
  - Clostridium difficile colitis [None]
  - Candida sepsis [None]
